FAERS Safety Report 13506579 (Version 1)
Quarter: 2017Q2

REPORT INFORMATION
  Report Type: Spontaneous
  Country: US (occurrence: US)
  Receive Date: 20170502
  Receipt Date: 20170502
  Transmission Date: 20170830
  Serious: No
  Sender: FDA-Public Use
  Company Number: US-ROCHE-799605

PATIENT
  Sex: Female

DRUGS (3)
  1. ZYMAXID [Concomitant]
     Active Substance: GATIFLOXACIN
  2. AVASTIN [Suspect]
     Active Substance: BEVACIZUMAB
     Indication: CHOROIDAL NEOVASCULARISATION
     Dosage: 25MG/ML
     Route: 050
     Dates: start: 20110720, end: 20110720
  3. AMOXYCILLIN [Concomitant]
     Active Substance: AMOXICILLIN

REACTIONS (1)
  - Pregnancy [Unknown]
